FAERS Safety Report 6089682-9 (Version None)
Quarter: 2009Q1

REPORT INFORMATION
  Report Type: 
  Country: None (occurrence: None)
  Receive Date: 20090224
  Receipt Date: 20090218
  Transmission Date: 20090719
  Serious: Yes (Other)
  Sender: FDA-Public Use
  Company Number: HR-ROXANE LABORATORIES, INC.-2009-RO-00171RO

PATIENT
  Age: 45 Year
  Sex: Male

DRUGS (4)
  1. CITALOPRAM HYDROBROMIDE [Suspect]
     Indication: POST-TRAUMATIC STRESS DISORDER
     Dosage: 30MG
  2. PROMAZINE HYDROCHLORIDE [Suspect]
     Indication: POST-TRAUMATIC STRESS DISORDER
     Dosage: 100MG
  3. DIVALPROEX SODIUM [Suspect]
     Indication: AFFECT LABILITY
     Dosage: 600MG
  4. DIVALPROEX SODIUM [Suspect]
     Indication: IRRITABILITY

REACTIONS (3)
  - AFFECT LABILITY [None]
  - DYSPHEMIA [None]
  - IRRITABILITY [None]
